FAERS Safety Report 14343883 (Version 7)
Quarter: 2018Q3

REPORT INFORMATION
  Report Type: Report from Study
  Country: BE (occurrence: BE)
  Receive Date: 20180102
  Receipt Date: 20180924
  Transmission Date: 20181010
  Serious: Yes (Hospitalization, Other)
  Sender: FDA-Public Use
  Company Number: BE-TAKEDA-2017TUS026970

PATIENT
  Age: 61 Year
  Sex: Male

DRUGS (13)
  1. RIBOFLAVINE [Concomitant]
     Active Substance: RIBOFLAVIN
     Dosage: 10 MG, UNK
  2. COLESTYRAMINE [Concomitant]
     Active Substance: CHOLESTYRAMINE
     Indication: CROHN^S DISEASE
     Dosage: 4 G, UNK
     Route: 048
     Dates: start: 20150226
  3. VEDOLIZUMAB [Suspect]
     Active Substance: VEDOLIZUMAB
     Indication: CROHN^S DISEASE
     Dosage: 300 MG, UNK
     Route: 042
     Dates: start: 20161116
  4. BISOPROLOL [Concomitant]
     Active Substance: BISOPROLOL
     Indication: HYPERTENSION
     Dosage: 2.5 MG, UNK
     Route: 048
     Dates: start: 20160603
  5. FOLIC ACID. [Concomitant]
     Active Substance: FOLIC ACID
     Indication: CROHN^S DISEASE
     Dosage: UNK
     Dates: start: 2014
  6. CALCIUM [Suspect]
     Active Substance: CALCIUM
     Indication: CROHN^S DISEASE
     Dosage: 1 G, UNK
     Route: 048
     Dates: start: 2014
  7. CYANOCOBALAMINE [Concomitant]
     Active Substance: CYANOCOBALAMIN
     Dosage: 0.02 MG, UNK
  8. PANTOPRAZOL [Concomitant]
     Active Substance: PANTOPRAZOLE SODIUM
     Indication: CROHN^S DISEASE
     Dosage: 20 MG, UNK
     Route: 048
     Dates: start: 20161228
  9. THIAMINE MONONITRATE [Concomitant]
     Active Substance: THIAMINE MONONITRATE
     Indication: CROHN^S DISEASE
     Dosage: 250 MG, UNK
     Route: 048
     Dates: start: 20161116
  10. MAGNESIUM [Concomitant]
     Active Substance: MAGNESIUM
     Indication: CROHN^S DISEASE
     Dosage: UNK
     Dates: start: 2014
  11. SALAZOPYRIN [Concomitant]
     Active Substance: SULFASALAZINE
     Indication: CROHN^S DISEASE
     Dosage: 2 G, UNK
     Route: 048
     Dates: start: 20161103
  12. ACETYLSALICYLZUUR [Concomitant]
     Active Substance: ASPIRIN
     Indication: CROHN^S DISEASE
     Dosage: 1 G, UNK
     Route: 048
  13. PYRIDOXINE HYDROCHLORIDE. [Concomitant]
     Active Substance: PYRIDOXINE HYDROCHLORIDE
     Dosage: 250 MG, UNK

REACTIONS (1)
  - Metastatic renal cell carcinoma [Recovered/Resolved with Sequelae]

NARRATIVE: CASE EVENT DATE: 20170921
